FAERS Safety Report 8063383-X (Version None)
Quarter: 2012Q1

REPORT INFORMATION
  Report Type: 
  Country: None (occurrence: None)
  Receive Date: 20120117
  Receipt Date: 20120103
  Transmission Date: 20120608
  Serious: Yes (Death)
  Sender: FDA-Public Use
  Company Number: B0773297A

PATIENT
  Age: 43 Year
  Sex: Female

DRUGS (6)
  1. ZOLPIDEM [Suspect]
     Dosage: ORAL
     Route: 048
  2. ESZOPICLONE [Concomitant]
  3. PAROXETINE HYDROCHLORIDE [Suspect]
     Dosage: ORAL
     Route: 048
  4. ARIPIPRAZOLE [Suspect]
     Dosage: ORAL
     Route: 048
  5. BUPROPION HCL [Suspect]
     Dosage: ORAL
     Route: 048
  6. HYDROCODONE BITARTRATE AND ACETAMINOPHEN [Suspect]
     Dosage: ORAL
     Route: 048

REACTIONS (2)
  - COMPLETED SUICIDE [None]
  - CARDIO-RESPIRATORY ARREST [None]
